FAERS Safety Report 10478413 (Version 1)
Quarter: 2014Q3

REPORT INFORMATION
  Report Type: Spontaneous
  Country: US (occurrence: US)
  Receive Date: 20140926
  Receipt Date: 20140926
  Transmission Date: 20150326
  Serious: No
  Sender: FDA-Public Use
  Company Number: US-TARO-2014P1003286

PATIENT
  Sex: Female

DRUGS (1)
  1. OVIDE [Suspect]
     Active Substance: MALATHION
     Indication: LICE INFESTATION
     Route: 061
     Dates: start: 20140412

REACTIONS (2)
  - Drug ineffective [Unknown]
  - Wrong technique in drug usage process [Unknown]

NARRATIVE: CASE EVENT DATE: 201404
